FAERS Safety Report 16732783 (Version 1)
Quarter: 2019Q3

REPORT INFORMATION
  Report Type: Spontaneous
  Country: JP (occurrence: JP)
  Receive Date: 20190823
  Receipt Date: 20190823
  Transmission Date: 20191005
  Serious: Yes (Other)
  Sender: FDA-Public Use
  Company Number: JP-TEVA-2019-JP-1096779

PATIENT

DRUGS (1)
  1. MODIODAL TABLETS 100 MG [Suspect]
     Active Substance: MODAFINIL
     Route: 048

REACTIONS (1)
  - Loss of consciousness [Recovered/Resolved]
